FAERS Safety Report 5346100-3 (Version None)
Quarter: 2007Q2

REPORT INFORMATION
  Report Type: 
  Country: None (occurrence: None)
  Receive Date: 20070427
  Receipt Date: 20070322
  Transmission Date: 20071010
  Serious: No
  Sender: FDA-Public Use
  Company Number: 2007-US-000150

PATIENT
  Age: 14 Year
  Sex: Male
  Weight: 30.4 kg

DRUGS (2)
  1. INCRELEX [Suspect]
     Indication: INSULIN-LIKE GROWTH FACTOR DECREASED
     Dosage: 0.12 ML, BID, SUBCUTANEOUS
     Route: 058
     Dates: start: 20061226
  2. ADDERRLL (AMFETAMINE ASPARTATE, AMFETAMINE SULFATE, DEXAMFETAMINE SACC [Concomitant]

REACTIONS (1)
  - HYPERGLYCAEMIA [None]
